FAERS Safety Report 22075914 (Version 1)
Quarter: 2023Q1

REPORT INFORMATION
  Report Type: Report from Study
  Country: US (occurrence: US)
  Receive Date: 20230308
  Receipt Date: 20230308
  Transmission Date: 20230418
  Serious: No
  Sender: FDA-Public Use
  Company Number: US-JNJFOC-20230315534

PATIENT
  Age: 64 Year
  Sex: Male

DRUGS (3)
  1. SIMPONI [Suspect]
     Active Substance: GOLIMUMAB
     Indication: Colitis ulcerative
     Route: 058
     Dates: start: 20190615, end: 20201031
  2. SIMPONI [Suspect]
     Active Substance: GOLIMUMAB
     Route: 058
     Dates: end: 20190615
  3. SIMPONI [Suspect]
     Active Substance: GOLIMUMAB
     Route: 058
     Dates: start: 20201001, end: 20230115

REACTIONS (2)
  - Squamous cell carcinoma [Recovered/Resolved]
  - Squamous cell carcinoma [Recovered/Resolved]

NARRATIVE: CASE EVENT DATE: 20220901
